FAERS Safety Report 24331495 (Version 1)
Quarter: 2024Q3

REPORT INFORMATION
  Report Type: Report from Study
  Country: GR (occurrence: GR)
  Receive Date: 20240918
  Receipt Date: 20240918
  Transmission Date: 20241017
  Serious: Yes (Death, Hospitalization, Other)
  Sender: TAKEDA
  Company Number: GR-TAKEDA-2024TUS091552

PATIENT
  Age: 75 Year
  Sex: Male

DRUGS (3)
  1. HUMAN IMMUNOGLOBULIN G\HYALURONIDASE RECOMBINANT HUMAN [Suspect]
     Active Substance: HUMAN IMMUNOGLOBULIN G\HYALURONIDASE (HUMAN RECOMBINANT)
     Indication: Immunodeficiency
     Dosage: UNK UNK, MONTHLY
     Route: 058
     Dates: start: 20240227
  2. HUMAN IMMUNOGLOBULIN G\HYALURONIDASE RECOMBINANT HUMAN [Suspect]
     Active Substance: HUMAN IMMUNOGLOBULIN G\HYALURONIDASE (HUMAN RECOMBINANT)
     Indication: Leukaemia
     Dosage: 100 MILLIGRAM
     Route: 065
  3. HUMAN IMMUNOGLOBULIN G\HYALURONIDASE RECOMBINANT HUMAN [Suspect]
     Active Substance: HUMAN IMMUNOGLOBULIN G\HYALURONIDASE (HUMAN RECOMBINANT)
     Dosage: 150 MILLIGRAM
     Route: 065

REACTIONS (9)
  - Acute respiratory failure [Fatal]
  - Respiratory tract infection [Fatal]
  - Aspiration [Fatal]
  - Septic shock [Fatal]
  - Epilepsy [Unknown]
  - COVID-19 [Unknown]
  - Nosocomial infection [Unknown]
  - Asthenia [Unknown]
  - Product use in unapproved indication [Unknown]

NARRATIVE: CASE EVENT DATE: 20240615
